FAERS Safety Report 8376359-X (Version None)
Quarter: 2012Q2

REPORT INFORMATION
  Report Type: 
  Country: None (occurrence: None)
  Receive Date: 20120522
  Receipt Date: 20120508
  Transmission Date: 20120825
  Serious: Yes (Hospitalization, Other)
  Sender: FDA-Public Use
  Company Number: US-MYLANLABS-2009AC000148

PATIENT
  Sex: Female
  Weight: 86.18 kg

DRUGS (31)
  1. FELDENE [Concomitant]
  2. AMOXICILLIN [Concomitant]
  3. TARKA [Concomitant]
     Dosage: 1/240
     Route: 048
  4. PREVACID [Concomitant]
  5. NAPROSYN [Concomitant]
  6. VICODIN [Concomitant]
  7. CLOBETASOL PROPIONATE [Concomitant]
  8. LISINOPRIL [Concomitant]
  9. PIROXICAM [Concomitant]
  10. DIGOXIN [Suspect]
     Indication: PRODUCT USED FOR UNKNOWN INDICATION
     Route: 048
     Dates: start: 20050310, end: 20090802
  11. LESCOL [Concomitant]
  12. DIFLUCAN [Concomitant]
  13. TRIAMCINOLONE [Concomitant]
  14. HYDROCHLOROTHIAZIDE [Concomitant]
  15. XYLOCAINE [Concomitant]
  16. PERI-COLACE [Concomitant]
     Route: 048
  17. KENALOG [Concomitant]
  18. CIPROFLOXACIN HCL [Concomitant]
  19. SIMVASTATIN [Concomitant]
  20. TOPROL-XL [Concomitant]
     Route: 048
  21. VOLTAREN-XR [Concomitant]
  22. CALAN [Concomitant]
  23. OXYBUTYNIN [Concomitant]
  24. METOPROLOL [Concomitant]
  25. VERAPMIL [Concomitant]
  26. BACTRIM [Concomitant]
  27. KLOR-CON [Concomitant]
  28. DEMEROL [Concomitant]
  29. NASONEX [Concomitant]
  30. WARFARIN SODIUM [Concomitant]
  31. LOVENOX [Concomitant]

REACTIONS (18)
  - HYPERCHOLESTEROLAEMIA [None]
  - NAUSEA [None]
  - CARDIAC VALVE DISEASE [None]
  - RENAL CYST [None]
  - LEFT VENTRICULAR HYPERTROPHY [None]
  - ELECTROCARDIOGRAM ABNORMAL [None]
  - INJURY [None]
  - HYPOKALAEMIA [None]
  - DYSPNOEA EXERTIONAL [None]
  - ATRIAL FIBRILLATION [None]
  - DIZZINESS [None]
  - TOXICITY TO VARIOUS AGENTS [None]
  - DYSPNOEA [None]
  - PULMONARY HYPERTENSION [None]
  - CARDIAC DISORDER [None]
  - SINUS BRADYCARDIA [None]
  - HYPERTENSION [None]
  - THYROID CYST [None]
